FAERS Safety Report 5203427-3 (Version None)
Quarter: 2007Q1

REPORT INFORMATION
  Report Type: 
  Country: None (occurrence: None)
  Receive Date: 20070110
  Receipt Date: 20070102
  Transmission Date: 20070707
  Serious: Yes (Hospitalization)
  Sender: FDA-Public Use
  Company Number: PHRM2007FR00452

PATIENT
  Age: 88 Year
  Sex: Male

DRUGS (6)
  1. COVERSYL /FRA/ [Concomitant]
     Route: 048
  2. NAFTIDROFURYL [Concomitant]
     Route: 048
  3. ISKEDYL [Concomitant]
     Route: 048
     Dates: end: 20061125
  4. ISKEDYL [Concomitant]
     Route: 048
     Dates: start: 20061130
  5. TEGRETOL [Suspect]
     Dosage: 400 MG, QD
     Route: 048
     Dates: end: 20061125
  6. TEGRETOL [Suspect]
     Dosage: 200 MG, QD
     Route: 048
     Dates: start: 20061126

REACTIONS (3)
  - DRUG LEVEL ABOVE THERAPEUTIC [None]
  - TRANSIENT ISCHAEMIC ATTACK [None]
  - VOMITING [None]
